FAERS Safety Report 7465927-5 (Version None)
Quarter: 2011Q2

REPORT INFORMATION
  Report Type: 
  Country: None (occurrence: None)
  Receive Date: 20110509
  Receipt Date: 20100506
  Transmission Date: 20111010
  Serious: No
  Sender: FDA-Public Use
  Company Number: US-ALEXION-A201000520

PATIENT
  Sex: Female

DRUGS (8)
  1. LEXAPRO [Concomitant]
     Dosage: 10 MG, QOD
  2. SOLIRIS [Suspect]
     Dosage: 900 MG, Q2WKS
     Route: 042
     Dates: start: 20070726
  3. FOLIC ACID [Concomitant]
     Dosage: UNK
  4. LEVOTHYROXINE SODIUM [Concomitant]
     Dosage: 250 UG, QD
  5. EPOGEN [Concomitant]
     Indication: DIALYSIS
  6. VITAMIN A [Concomitant]
     Indication: DIALYSIS
  7. SOLIRIS [Suspect]
     Indication: PAROXYSMAL NOCTURNAL HAEMOGLOBINURIA
     Dosage: 600 MG, QWKX4
     Route: 042
     Dates: start: 20070628, end: 20070701
  8. VITAMIN B6 [Concomitant]
     Dosage: 100 MG, QD

REACTIONS (1)
  - CATARACT OPERATION [None]
